FAERS Safety Report 7004596-5 (Version None)
Quarter: 2010Q3

REPORT INFORMATION
  Report Type: 
  Country: None (occurrence: None)
  Receive Date: 20100921
  Receipt Date: 20100908
  Transmission Date: 20110219
  Serious: Yes (Hospitalization, Other)
  Sender: FDA-Public Use
  Company Number: ES-ELI_LILLY_AND_COMPANY-ES201009003094

PATIENT
  Sex: Female

DRUGS (14)
  1. FORTEO [Suspect]
     Indication: OSTEOPOROSIS
     Dosage: 20 UG, DAILY (1/D)
     Route: 058
     Dates: start: 20090107
  2. HIDROALTESONA [Concomitant]
     Indication: SYSTEMIC LUPUS ERYTHEMATOSUS
     Dosage: 1 UNK, 2/D
     Route: 048
  3. PANTECTA [Concomitant]
     Dosage: 20 MG, 2/D
     Route: 048
  4. VOLTAREN                                /SCH/ [Concomitant]
     Indication: PAIN
     Dosage: 75 MG, 2/D
     Route: 048
  5. SUTRIL [Concomitant]
     Indication: DIURETIC THERAPY
     Dosage: 10 MG, EACH MORNING
     Route: 048
  6. SIMVASTATINA [Concomitant]
     Indication: HYPERCHOLESTEROLAEMIA
     Dosage: 20 MG, AT NIGHT
     Route: 048
  7. DURAGESIC-100 [Concomitant]
     Indication: PAIN
     Dosage: 1 UNK, EVERY THREE DAYS
     Route: 058
  8. LORAZEPAM [Concomitant]
     Indication: SLEEP DISORDER
     Dosage: 1 MG, AT NIGHT
     Route: 048
  9. TIMOLOL MALEATE [Concomitant]
     Indication: GLAUCOMA
     Dosage: 1 DROP, UNK
     Route: 047
  10. TIMOLOL MALEATE [Concomitant]
     Dosage: 1 D/F, EACH NIGHT
     Route: 047
  11. XALATAN [Concomitant]
     Indication: GLAUCOMA
     Dosage: 1 DROP, AT NIGHT
     Route: 047
  12. IBERCAL [Concomitant]
     Indication: BLOOD CALCIUM
     Dosage: 1 UNK, AT LUNCHTIME
     Route: 048
  13. ANTIBIOTICS [Concomitant]
     Indication: INFECTION
     Dosage: UNK, DURING ALL THE DAY
     Route: 042
  14. OMEPRAZOLE [Concomitant]
     Dosage: UNK, UNKNOWN
     Route: 065

REACTIONS (3)
  - INTESTINAL PERFORATION [None]
  - VERTEBROPLASTY [None]
  - WOUND INFECTION [None]
